FAERS Safety Report 10551273 (Version 2)
Quarter: 2014Q4

REPORT INFORMATION
  Report Type: Report from Study
  Country: ES (occurrence: ES)
  Receive Date: 20141029
  Receipt Date: 20141210
  Transmission Date: 20150529
  Serious: Yes (Hospitalization)
  Sender: FDA-Public Use
  Company Number: ES-AMGEN-ESPCT2014082036

PATIENT
  Age: 52 Year
  Sex: Male

DRUGS (6)
  1. PACLITAXEL. [Concomitant]
     Active Substance: PACLITAXEL
     Indication: HEAD AND NECK CANCER
     Dosage: 153 MG, QWK
     Route: 042
     Dates: start: 20140829, end: 20141017
  2. RANITIDINE [Concomitant]
     Active Substance: RANITIDINE\RANITIDINE HYDROCHLORIDE
     Dosage: 50 MG, QWK
     Route: 042
     Dates: start: 20140829, end: 20141017
  3. DEXCHLORPHENIRAMINE [Concomitant]
     Active Substance: DEXCHLORPHENIRAMINE
     Dosage: 5 MG, QWK
     Route: 042
     Dates: start: 20140829, end: 20141017
  4. DEXAMETHASONE. [Concomitant]
     Active Substance: DEXAMETHASONE
     Dosage: 8 MG, QWK
     Route: 042
     Dates: start: 20140829, end: 20141017
  5. ONDANSETRON [Concomitant]
     Active Substance: ONDANSETRON
     Dosage: 12 MG, QWK
     Route: 042
     Dates: start: 20140829, end: 20141017
  6. PANITUMUMAB [Suspect]
     Active Substance: PANITUMUMAB
     Indication: HEAD AND NECK CANCER
     Dosage: 450 MG, QWK
     Route: 042
     Dates: start: 20140829, end: 20141017

REACTIONS (2)
  - Arthritis bacterial [Recovered/Resolved]
  - Skin toxicity [Recovered/Resolved]

NARRATIVE: CASE EVENT DATE: 20141021
